FAERS Safety Report 7771651-1 (Version None)
Quarter: 2011Q3

REPORT INFORMATION
  Report Type: 
  Country: None (occurrence: None)
  Receive Date: 20110922
  Receipt Date: 20100811
  Transmission Date: 20111222
  Serious: Yes (Other)
  Sender: FDA-Public Use
  Company Number: US-ASTRAZENECA-2008UW04288

PATIENT
  Age: 15369 Day
  Sex: Female
  Weight: 110.7 kg

DRUGS (15)
  1. ZYPREXA [Concomitant]
     Indication: DEPRESSION
     Dates: start: 20000101
  2. SEROQUEL [Suspect]
     Route: 048
     Dates: start: 20040101
  3. BUSPAR [Concomitant]
     Dates: start: 20070613
  4. WELLBUTRIN [Concomitant]
     Dates: start: 20040101
  5. SEROQUEL [Suspect]
     Indication: ANXIETY
     Route: 048
     Dates: start: 20000218
  6. GEODON [Concomitant]
     Dates: start: 20040101
  7. SEROQUEL [Suspect]
     Route: 048
     Dates: start: 20030317
  8. SEROQUEL [Suspect]
     Route: 048
     Dates: start: 20040101
  9. KLOR-CON [Concomitant]
     Dates: start: 20071029
  10. GEODON [Concomitant]
     Dates: start: 20071029
  11. SEROQUEL [Suspect]
     Indication: DEPRESSION
     Route: 048
     Dates: start: 20000218
  12. SEROQUEL [Suspect]
     Route: 048
     Dates: start: 20030317
  13. ALBUTEROL [Concomitant]
     Dosage: FOUR TIMES A DAY
     Dates: start: 20071029
  14. WELLBUTRIN [Concomitant]
     Dates: start: 20071029
  15. ZYPREXA [Concomitant]
     Indication: ANXIETY
     Dates: start: 20000101

REACTIONS (4)
  - DIABETES MELLITUS INADEQUATE CONTROL [None]
  - OBESITY [None]
  - TYPE 2 DIABETES MELLITUS [None]
  - DIABETES MELLITUS [None]
